FAERS Safety Report 9297439 (Version 3)
Quarter: 2013Q4

REPORT INFORMATION
  Report Type: Report from Study
  Country: JP (occurrence: JP)
  Receive Date: 20130520
  Receipt Date: 20131126
  Transmission Date: 20140711
  Serious: Yes (Life-Threatening, Hospitalization, Disabling, Other)
  Sender: FDA-Public Use
  Company Number: JP-009507513-1111USA03785

PATIENT
  Age: 62 Year
  Sex: Male

DRUGS (8)
  1. ZOLINZA CAPSULES 100MG [Suspect]
     Indication: MYCOSIS FUNGOIDES
     Dosage: 400 MG, QD
     Route: 048
     Dates: start: 20111107, end: 20111115
  2. PREDONINE [Suspect]
     Indication: MYCOSIS FUNGOIDES
     Dosage: 10 MG, QD
     Route: 048
     Dates: start: 200607, end: 20111024
  3. PREDONINE [Suspect]
     Dosage: 7.5 MG, QD
     Route: 048
     Dates: start: 20111025, end: 20111101
  4. PREDONINE [Suspect]
     Dosage: 5 MG, QD
     Route: 048
     Dates: start: 20111102, end: 20111106
  5. VANCOMYCIN HYDROCHLORIDE [Suspect]
     Indication: SEPSIS
     Dosage: 0.5 G, BID
     Route: 041
     Dates: start: 20111111, end: 20111117
  6. IMIPENEM (+) CILASTATIN SODIUM [Concomitant]
     Indication: SEPSIS
     Dosage: 0.5 G, BID
     Route: 051
     Dates: start: 20111110, end: 20111111
  7. ZYVOX [Concomitant]
     Indication: SEPSIS
     Dosage: 600 MG, BID
     Route: 041
     Dates: start: 20111117, end: 20111121
  8. CEFTRIAXONE SODIUM [Concomitant]
     Indication: SEPSIS
     Dosage: 2 G, BID
     Route: 042
     Dates: start: 20111117, end: 20111120

REACTIONS (7)
  - Sepsis [Recovered/Resolved]
  - Mucous membrane disorder [Unknown]
  - Glossodynia [Recovered/Resolved]
  - Dysgeusia [Recovered/Resolved]
  - Renal impairment [Recovered/Resolved]
  - Eyelid oedema [Recovered/Resolved]
  - Alopecia [Recovering/Resolving]
